FAERS Safety Report 9057652 (Version 1)
Quarter: 2013Q1

REPORT INFORMATION
  Report Type: Spontaneous
  Country: DE (occurrence: DE)
  Receive Date: 20130204
  Receipt Date: 20130204
  Transmission Date: 20140127
  Serious: Yes (Other)
  Sender: FDA-Public Use
  Company Number: DE-PFIZER INC-2013039793

PATIENT
  Sex: Male
  Weight: 2.75 kg

DRUGS (8)
  1. TAVOR [Suspect]
     Indication: POST-TRAUMATIC STRESS DISORDER
     Dosage: 1 MG/DAY
     Route: 064
     Dates: start: 20110928, end: 20120621
  2. TREVILOR RETARD [Suspect]
     Indication: BORDERLINE PERSONALITY DISORDER
     Dosage: 150 MG/DAY
     Route: 064
     Dates: start: 20110928
  3. TREVILOR RETARD [Suspect]
     Dosage: 75 MG/DAY
     Route: 064
     Dates: end: 20120621
  4. LYRICA [Suspect]
     Indication: BORDERLINE PERSONALITY DISORDER
     Dosage: 225 MG/DAY
     Route: 064
     Dates: start: 20110928, end: 20111027
  5. CENTRUM [Suspect]
     Indication: PROPHYLAXIS OF NEURAL TUBE DEFECT
     Dosage: 0.4 MG/DAY
     Route: 064
     Dates: start: 20111025, end: 20120621
  6. PROMETHAZINE [Suspect]
     Indication: POST-TRAUMATIC STRESS DISORDER
     Dosage: 25 MG/DAY
     Route: 064
     Dates: start: 20110928, end: 20120621
  7. BUSPIRONE [Suspect]
     Indication: POST-TRAUMATIC STRESS DISORDER
     Dosage: 20 MG/DAY
     Route: 064
     Dates: start: 20110928, end: 20111024
  8. MOVICOL [Suspect]
     Indication: CONSTIPATION
     Dosage: UNK
     Route: 064
     Dates: start: 20111128, end: 20120621

REACTIONS (4)
  - Maternal exposure timing unspecified [Recovered/Resolved]
  - Neonatal respiratory distress syndrome [Recovered/Resolved]
  - Bradycardia neonatal [Recovered/Resolved]
  - Low birth weight baby [Recovered/Resolved]
